FAERS Safety Report 4858612-7 (Version None)
Quarter: 2005Q4

REPORT INFORMATION
  Report Type: 
  Country: None (occurrence: None)
  Receive Date: 20051219
  Receipt Date: 20051010
  Transmission Date: 20060501
  Serious: No
  Sender: FDA-Public Use
  Company Number: US-GLAXOSMITHKLINE-A0577609A

PATIENT
  Age: 44 Year
  Sex: Female

DRUGS (3)
  1. TARGET NTS 14MG [Suspect]
     Dates: start: 20050906, end: 20050928
  2. PENICILLIN [Concomitant]
  3. UNSPECIFIED ANTIBIOTIC [Concomitant]

REACTIONS (7)
  - APPLICATION SITE DRYNESS [None]
  - APPLICATION SITE ERYTHEMA [None]
  - APPLICATION SITE IRRITATION [None]
  - APPLICATION SITE PRURITUS [None]
  - APPLICATION SITE SWELLING [None]
  - APPLICATION SITE URTICARIA [None]
  - RASH [None]
